FAERS Safety Report 19208209 (Version 1)
Quarter: 2021Q2

REPORT INFORMATION
  Report Type: Report from Study
  Country: US (occurrence: US)
  Receive Date: 20210503
  Receipt Date: 20210503
  Transmission Date: 20210717
  Serious: No
  Sender: FDA-Public Use
  Company Number: US-GLAXOSMITHKLINE-US2020AMR259064

PATIENT
  Age: 77 Year
  Sex: Male

DRUGS (3)
  1. BELANTAMAB MAFODOTIN. [Suspect]
     Active Substance: BELANTAMAB MAFODOTIN
     Dosage: UNK, 165 MG
     Dates: start: 20201229
  2. BELANTAMAB MAFODOTIN. [Suspect]
     Active Substance: BELANTAMAB MAFODOTIN
     Dosage: UNK, 165 MG
     Dates: start: 20201203
  3. BELANTAMAB MAFODOTIN. [Suspect]
     Active Substance: BELANTAMAB MAFODOTIN
     Indication: PRODUCT USED FOR UNKNOWN INDICATION
     Dosage: UNK

REACTIONS (7)
  - Visual acuity reduced [Recovered/Resolved]
  - Photophobia [Recovered/Resolved]
  - Foreign body sensation in eyes [Recovered/Resolved]
  - Ocular toxicity [Unknown]
  - Night blindness [Recovered/Resolved]
  - Keratopathy [Unknown]
  - Dry eye [Recovered/Resolved]

NARRATIVE: CASE EVENT DATE: 20210107
